FAERS Safety Report 5812832-3 (Version None)
Quarter: 2008Q3

REPORT INFORMATION
  Report Type: 
  Country: None (occurrence: None)
  Receive Date: 20080714
  Receipt Date: 20080707
  Transmission Date: 20090109
  Serious: Yes (Death)
  Sender: FDA-Public Use
  Company Number: 163-21880-08040287

PATIENT
  Age: 66 Year
  Sex: Female

DRUGS (12)
  1. REVLIMID [Suspect]
     Indication: LYMPHOMA
     Dosage: 25 MG, 1 IN 1 D, ORAL
     Route: 048
     Dates: start: 20080101, end: 20080201
  2. ENALAPRIL MALEATE [Concomitant]
  3. VICODIN [Concomitant]
  4. PREVACID [Concomitant]
  5. COMBIVENT [Concomitant]
  6. SPIRONOLACTONE [Concomitant]
  7. ALUMINUM HYDROXIDE AND MAGNESIUM TRISILICATE [Concomitant]
  8. ACETAMINOPHEN [Concomitant]
  9. MORPHINE [Concomitant]
  10. LYRICA [Concomitant]
  11. CYMBALTA [Concomitant]
  12. CORTEF [Concomitant]

REACTIONS (11)
  - CLOSTRIDIUM DIFFICILE COLITIS [None]
  - DEPRESSION [None]
  - HAEMOCHROMATOSIS [None]
  - HEPATIC FAILURE [None]
  - HEPATITIS C [None]
  - LYMPHOMA [None]
  - MALIGNANT NEOPLASM PROGRESSION [None]
  - PAIN [None]
  - PANCYTOPENIA [None]
  - PELVIC MASS [None]
  - SEPSIS [None]
